FAERS Safety Report 24885353 (Version 1)
Quarter: 2025Q1

REPORT INFORMATION
  Report Type: Spontaneous
  Country: US (occurrence: US)
  Receive Date: 20250124
  Receipt Date: 20250124
  Transmission Date: 20250408
  Serious: Yes (Other)
  Sender: TEVA
  Company Number: US-TEVA-VS-3289682

PATIENT
  Sex: Female

DRUGS (5)
  1. OXYMORPHONE [Suspect]
     Active Substance: OXYMORPHONE
     Indication: Breakthrough pain
     Route: 065
  2. OXYMORPHONE [Suspect]
     Active Substance: OXYMORPHONE
     Indication: Breakthrough pain
     Route: 065
  3. OXYMORPHONE [Suspect]
     Active Substance: OXYMORPHONE
     Indication: Breakthrough pain
     Route: 065
  4. OXYMORPHONE [Suspect]
     Active Substance: OXYMORPHONE
     Indication: Breakthrough pain
     Route: 065
  5. OPANA ER [Suspect]
     Active Substance: OXYMORPHONE HYDROCHLORIDE
     Indication: Breakthrough pain
     Route: 065

REACTIONS (1)
  - Eye disorder [Unknown]
